FAERS Safety Report 5531633-7 (Version None)
Quarter: 2007Q4

REPORT INFORMATION
  Report Type: 
  Country: None (occurrence: None)
  Receive Date: 20071115
  Receipt Date: 20071108
  Transmission Date: 20080405
  Serious: No
  Sender: FDA-Public Use
  Company Number: JPI-P-002398

PATIENT
  Age: 31 Year
  Sex: Male
  Weight: 158.759 kg

DRUGS (4)
  1. XYREM [Suspect]
     Indication: SOMNOLENCE
     Dosage: 5 GM (2.5 G, 2 IN 1D), ORAL; 24 GM (8 GM, 3 IN 1D), ORAL; 18 GM (6 GM, 3 IN 1D), ORAL
     Route: 048
     Dates: end: 20071001
  2. XYREM [Suspect]
     Indication: SOMNOLENCE
     Dosage: 5 GM (2.5 G, 2 IN 1D), ORAL; 24 GM (8 GM, 3 IN 1D), ORAL; 18 GM (6 GM, 3 IN 1D), ORAL
     Route: 048
     Dates: start: 20071001, end: 20071028
  3. XYREM [Suspect]
     Indication: SOMNOLENCE
     Dosage: 5 GM (2.5 G, 2 IN 1D), ORAL; 24 GM (8 GM, 3 IN 1D), ORAL; 18 GM (6 GM, 3 IN 1D), ORAL
     Route: 048
     Dates: start: 20040101
  4. XYREM [Suspect]
     Indication: SOMNOLENCE
     Dosage: 5 GM (2.5 G, 2 IN 1D), ORAL; 24 GM (8 GM, 3 IN 1D), ORAL; 18 GM (6 GM, 3 IN 1D), ORAL
     Route: 048
     Dates: start: 20071001

REACTIONS (6)
  - ABNORMAL BEHAVIOUR [None]
  - ANXIETY [None]
  - IMPAIRED WORK ABILITY [None]
  - INSOMNIA [None]
  - OVERDOSE [None]
  - SUICIDE ATTEMPT [None]
